FAERS Safety Report 20133714 (Version 1)
Quarter: 2021Q4

REPORT INFORMATION
  Report Type: Spontaneous
  Country: DK (occurrence: DK)
  Receive Date: 20211201
  Receipt Date: 20211201
  Transmission Date: 20220303
  Serious: Yes (Other)
  Sender: FDA-Public Use
  Company Number: DK-NOVARTISPH-NVSC2021DK270677

PATIENT
  Age: 61 Year
  Sex: Male

DRUGS (3)
  1. IMATINIB [Suspect]
     Active Substance: IMATINIB
     Indication: Gastric neoplasm
     Dosage: 400 MG, QD
     Route: 048
  2. IMATINIB [Suspect]
     Active Substance: IMATINIB
     Dosage: 400 MG, BID
     Route: 048
     Dates: end: 200607
  3. IMATINIB [Suspect]
     Active Substance: IMATINIB
     Dosage: 200 MG, QD (REINTRODUCED)
     Route: 065

REACTIONS (5)
  - Gastric neoplasm [Unknown]
  - Malignant neoplasm progression [Unknown]
  - Epidermolysis [Unknown]
  - Drug intolerance [Unknown]
  - Product use in unapproved indication [Unknown]

NARRATIVE: CASE EVENT DATE: 20060501
